FAERS Safety Report 6260685-4 (Version None)
Quarter: 2009Q3

REPORT INFORMATION
  Report Type: 
  Country: None (occurrence: None)
  Receive Date: 20090706
  Receipt Date: 20090619
  Transmission Date: 20100115
  Serious: Yes (Hospitalization)
  Sender: FDA-Public Use
  Company Number: 2009BI019771

PATIENT
  Age: 60 Year
  Sex: Male

DRUGS (5)
  1. ZEVALIN [Suspect]
     Indication: MANTLE CELL LYMPHOMA
     Dosage: 26 MCI; 1X; IV
     Route: 042
     Dates: start: 20071026, end: 20071026
  2. OMEPRAZOL [Concomitant]
  3. NITROGLYCERIN [Concomitant]
  4. ATORVASTATIN CALCIUM [Concomitant]
  5. ATENOLOL [Concomitant]

REACTIONS (1)
  - RESPIRATORY TRACT INFECTION [None]
